FAERS Safety Report 19830969 (Version 1)
Quarter: 2021Q3

REPORT INFORMATION
  Report Type: Spontaneous
  Country: US (occurrence: US)
  Receive Date: 20210915
  Receipt Date: 20210915
  Transmission Date: 20211014
  Serious: No
  Sender: FDA-Public Use
  Company Number: US-SA-2021SA301852

PATIENT
  Age: 67 Year
  Sex: Female

DRUGS (6)
  1. ADVIL [Suspect]
     Active Substance: IBUPROFEN
  2. RUBELLA VIRUS VACCINE LIVE NOS [Suspect]
     Active Substance: RUBELLA VIRUS STRAIN WISTAR RA 27/3 LIVE ANTIGEN
  3. DUPIXENT [Suspect]
     Active Substance: DUPILUMAB
     Indication: ECZEMA
     Dosage: 300 MG, QW
     Dates: start: 20210301
  4. VASELINE [PARAFFIN] [Suspect]
     Active Substance: PARAFFIN
  5. ALEVE [Suspect]
     Active Substance: NAPROXEN SODIUM
  6. MOTRIN [Suspect]
     Active Substance: IBUPROFEN

REACTIONS (13)
  - Inflammation [Not Recovered/Not Resolved]
  - Ear swelling [Unknown]
  - Pain [Unknown]
  - Pruritus [Recovered/Resolved]
  - Skin warm [Not Recovered/Not Resolved]
  - Erythema [Not Recovered/Not Resolved]
  - Swelling face [Unknown]
  - Rash [Unknown]
  - Off label use [Unknown]
  - Pyrexia [Unknown]
  - Head discomfort [Unknown]
  - Blister [Recovered/Resolved]
  - Arthritis [Unknown]

NARRATIVE: CASE EVENT DATE: 2021
